FAERS Safety Report 4291020-9 (Version None)
Quarter: 2004Q1

REPORT INFORMATION
  Report Type: 
  Country: None (occurrence: None)
  Receive Date: 20040209
  Receipt Date: 20040119
  Transmission Date: 20041129
  Serious: Yes (Hospitalization)
  Sender: FDA-Public Use
  Company Number: B0308401A

PATIENT
  Age: 60 Year
  Sex: Female

DRUGS (11)
  1. ZOVIRAX [Suspect]
     Indication: HERPES ZOSTER
     Dosage: ORAL
     Route: 048
     Dates: start: 20030830, end: 20030109
  2. SENNOSIDES [Concomitant]
  3. SODIUM PICOSULPHATE [Concomitant]
  4. ALUMINIUM ASPIRIN [Concomitant]
  5. REBAMPIDE [Concomitant]
  6. FLUNITRAZEPAM [Concomitant]
  7. CALCIUM CARBONATE [Concomitant]
  8. LOXOPROFEN [Concomitant]
  9. LIGNOCAINE HYDROCHLORIDE [Concomitant]
  10. VIDARABINE [Concomitant]
  11. HUMAN INSULIN [Concomitant]

REACTIONS (3)
  - ASTHENIA [None]
  - DEPRESSED LEVEL OF CONSCIOUSNESS [None]
  - DYSLALIA [None]
